FAERS Safety Report 9404604 (Version 1)
Quarter: 2013Q3

REPORT INFORMATION
  Report Type: Spontaneous
  Country: US (occurrence: None)
  Receive Date: 20130716
  Receipt Date: 20130716
  Transmission Date: 20140515
  Serious: Yes (Hospitalization)
  Sender: FDA-Public Use
  Company Number: None

PATIENT
  Age: 75 Year
  Sex: Male
  Weight: 67.7 kg

DRUGS (2)
  1. ASPIRIN [Suspect]
     Indication: ATRIAL FIBRILLATION
     Route: 048
     Dates: start: 20121024, end: 20130418
  2. ALENDRONATE [Suspect]
     Indication: FRACTURE
     Route: 048
     Dates: start: 20111115, end: 20130426

REACTIONS (5)
  - Dizziness [None]
  - Hyperhidrosis [None]
  - Erosive oesophagitis [None]
  - Gastric haemorrhage [None]
  - Small intestinal haemorrhage [None]
